FAERS Safety Report 5337969-7 (Version None)
Quarter: 2007Q2

REPORT INFORMATION
  Report Type: 
  Country: None (occurrence: None)
  Receive Date: 20070530
  Receipt Date: 20070522
  Transmission Date: 20071010
  Serious: Yes (Other)
  Sender: FDA-Public Use
  Company Number: PHRM2007FR01105

PATIENT
  Age: 42 Year
  Sex: Female
  Weight: 55 kg

DRUGS (6)
  1. ZOMETA [Suspect]
     Indication: METASTASES TO BONE
     Dosage: 4 MG, QMO
     Route: 042
     Dates: start: 20040624, end: 20070101
  2. TAXOTERE [Concomitant]
     Dates: start: 20040604, end: 20041112
  3. FLUOROURACIL [Concomitant]
     Dates: start: 20050610, end: 20051020
  4. FLUOROURACIL [Concomitant]
     Dates: start: 20070108
  5. NAVELBINE [Concomitant]
     Dates: start: 20050610, end: 20051020
  6. NAVELBINE [Concomitant]
     Dates: start: 20070108

REACTIONS (3)
  - DENTAL CARE [None]
  - DENTAL CARIES [None]
  - OSTEONECROSIS [None]
